FAERS Safety Report 7582403-X (Version None)
Quarter: 2011Q2

REPORT INFORMATION
  Report Type: 
  Country: None (occurrence: None)
  Receive Date: 20110630
  Receipt Date: 20110616
  Transmission Date: 20111010
  Serious: Yes (Disabling, Other)
  Sender: FDA-Public Use
  Company Number: US-BAYER-200933545NA

PATIENT
  Age: 42 Year
  Sex: Male
  Weight: 43.991 kg

DRUGS (7)
  1. NEXAVAR [Suspect]
     Dosage: 200 MG, BID
     Dates: start: 20110101, end: 20110101
  2. NEXAVAR [Suspect]
     Indication: HEPATIC NEOPLASM MALIGNANT
     Dosage: 400 MG, BID
     Route: 048
     Dates: start: 20090918, end: 20091015
  3. NEXAVAR [Suspect]
     Route: 048
     Dates: start: 20091001, end: 20091101
  4. NEXAVAR [Suspect]
     Dosage: 100 MG, QD
     Dates: start: 20110101, end: 20110201
  5. NEXAVAR [Suspect]
     Dosage: 200 MG, BID
     Route: 048
     Dates: start: 20091101
  6. NEXAVAR [Suspect]
     Dosage: 200 MG, BID
     Route: 048
     Dates: start: 20101206
  7. NEXAVAR [Suspect]
     Dosage: 200 MG, DAILY 2 WEEKS ON, 1 WEEK OFF
     Route: 048

REACTIONS (15)
  - HEPATIC NEOPLASM [None]
  - MOBILITY DECREASED [None]
  - HAEMATOCHEZIA [None]
  - JOINT STIFFNESS [None]
  - BURNING SENSATION [None]
  - DERMATITIS BULLOUS [None]
  - DRY SKIN [None]
  - ERYTHEMA [None]
  - SKIN HAEMORRHAGE [None]
  - BLISTER [None]
  - FATIGUE [None]
  - SKIN DISORDER [None]
  - VOMITING [None]
  - SKIN FISSURES [None]
  - DYSPEPSIA [None]
